FAERS Safety Report 5062167-4 (Version None)
Quarter: 2006Q3

REPORT INFORMATION
  Report Type: 
  Country: None (occurrence: None)
  Receive Date: 20060726
  Receipt Date: 20060714
  Transmission Date: 20061208
  Serious: Yes (Death, Other)
  Sender: FDA-Public Use
  Company Number: JP-JNJFOC-20051205297

PATIENT
  Age: 59 Year
  Sex: Male

DRUGS (6)
  1. DUROTEP [Suspect]
     Route: 062
  2. DUROTEP [Suspect]
     Route: 062
  3. DUROTEP [Suspect]
     Route: 062
  4. DUROTEP [Suspect]
     Indication: CANCER PAIN
     Route: 062
  5. MELOXICAM [Concomitant]
     Indication: CANCER PAIN
     Route: 048
  6. CODEINE PHOSPHATE [Concomitant]
     Indication: CANCER PAIN
     Route: 048

REACTIONS (6)
  - ABNORMAL BEHAVIOUR [None]
  - COLORECTAL CANCER METASTATIC [None]
  - DELIRIUM [None]
  - DEPRESSED LEVEL OF CONSCIOUSNESS [None]
  - INSOMNIA [None]
  - SOMNOLENCE [None]
